FAERS Safety Report 25676162 (Version 1)
Quarter: 2025Q3

REPORT INFORMATION
  Report Type: Spontaneous
  Country: PR (occurrence: PR)
  Receive Date: 20250813
  Receipt Date: 20250813
  Transmission Date: 20251020
  Serious: No
  Sender: ANI
  Company Number: PR-ANIPHARMA-2024-PR-000028

PATIENT

DRUGS (3)
  1. ANASTROZOLE [Suspect]
     Active Substance: ANASTROZOLE
     Indication: Product used for unknown indication
  2. IBRANCE [Suspect]
     Active Substance: PALBOCICLIB
     Dates: start: 20230914
  3. EXEMESTANE [Suspect]
     Active Substance: EXEMESTANE

REACTIONS (3)
  - Arthralgia [Unknown]
  - Alopecia [Not Recovered/Not Resolved]
  - Miliaria [Unknown]
